FAERS Safety Report 15748166 (Version 1)
Quarter: 2018Q4

REPORT INFORMATION
  Report Type: Spontaneous
  Country: US (occurrence: US)
  Receive Date: 20181221
  Receipt Date: 20181221
  Transmission Date: 20190205
  Serious: No
  Sender: FDA-Public Use
  Company Number: US-009507513-1811USA011153

PATIENT
  Sex: Female

DRUGS (2)
  1. ASMANEX [Suspect]
     Active Substance: MOMETASONE FUROATE
     Dosage: 110 MCG; ONE PUFF ONCE EVERY OTHER DAY
     Dates: start: 201811
  2. ASMANEX [Suspect]
     Active Substance: MOMETASONE FUROATE
     Dosage: 110 MCG, ONE PUFF ONCE DAILY
     Dates: end: 201811

REACTIONS (3)
  - No adverse event [Unknown]
  - Intentional product misuse [Unknown]
  - Product supply issue [Unknown]

NARRATIVE: CASE EVENT DATE: 201811
